FAERS Safety Report 7579646-8 (Version None)
Quarter: 2011Q2

REPORT INFORMATION
  Report Type: 
  Country: None (occurrence: None)
  Receive Date: 20110629
  Receipt Date: 20110615
  Transmission Date: 20111010
  Serious: Yes (Hospitalization)
  Sender: FDA-Public Use
  Company Number: AT-JNJFOC-20110501423

PATIENT
  Sex: Female
  Weight: 83.3 kg

DRUGS (15)
  1. REMICADE [Suspect]
     Route: 042
     Dates: start: 20101109
  2. IMMUNOPRIN [Concomitant]
     Indication: COLITIS ULCERATIVE
     Dosage: FREQUENCY: ^1/0/1^
     Route: 048
  3. RAMIPRIL [Concomitant]
     Indication: HYPERTENSION
     Route: 048
  4. CAL-D-VITA [Concomitant]
     Indication: COLITIS ULCERATIVE
  5. TRAMAL RETARD [Concomitant]
  6. TRIMIPRAMINE MALEATE [Concomitant]
  7. REMICADE [Suspect]
     Route: 042
  8. REMICADE [Suspect]
     Route: 042
     Dates: start: 20100914
  9. BISOPROLOL [Concomitant]
     Indication: HYPERTENSION
     Route: 048
  10. REMICADE [Suspect]
     Indication: COLITIS ULCERATIVE
     Route: 042
     Dates: start: 20100622
  11. CO-ENAC [Concomitant]
     Indication: HYPERTENSION
     Route: 048
  12. OMEC [Concomitant]
     Indication: HYPERTENSION
     Route: 048
  13. REMICADE [Suspect]
     Route: 042
     Dates: start: 20100608
  14. FERRETAB [Concomitant]
     Indication: IRON DEFICIENCY
  15. DEANXIT [Concomitant]
     Indication: DEPRESSION
     Dates: end: 20100627

REACTIONS (1)
  - DEPRESSION [None]
